FAERS Safety Report 8957454 (Version 4)
Quarter: 2013Q1

REPORT INFORMATION
  Report Type: Spontaneous
  Country: JP (occurrence: JP)
  Receive Date: 20121211
  Receipt Date: 20130131
  Transmission Date: 20140127
  Serious: Yes (Other)
  Sender: FDA-Public Use
  Company Number: PHHY2012JP112792

PATIENT
  Age: 78 Year
  Sex: Male
  Weight: 58 kg

DRUGS (10)
  1. EXELON PATCH [Suspect]
     Indication: DEMENTIA ALZHEIMER^S TYPE
     Dosage: 4.5 MG, DAILY
     Route: 062
     Dates: start: 20121101, end: 20121128
  2. EXELON PATCH [Suspect]
     Dosage: 9 MG, DAILY
     Route: 062
     Dates: start: 20121129, end: 20121204
  3. OLMETEC [Concomitant]
     Indication: HYPERTENSION
     Dosage: 20 MG, UNK
     Route: 048
     Dates: start: 20121025
  4. AMLODIPINE [Concomitant]
     Indication: HYPERTENSION
     Dosage: 10 MG, UNK
     Route: 048
     Dates: start: 20121025
  5. NEXIUM//ESOMEPRAZOLE MAGNESIUM [Concomitant]
     Indication: GASTROOESOPHAGEAL REFLUX DISEASE
     Dosage: 20 MG, DAILY
     Route: 048
     Dates: start: 20120111
  6. FEBURIC [Concomitant]
     Indication: HYPERURICAEMIA
     Dosage: 20 MG,DAILY
     Route: 048
     Dates: start: 20120125
  7. SODIUM BICARBONATE [Concomitant]
     Dosage: 0.5 MG, DAILY
     Route: 048
     Dates: start: 20100723
  8. GASMOTIN [Concomitant]
     Indication: GASTROOESOPHAGEAL REFLUX DISEASE
     Dosage: 5 MG, DAILY
     Route: 048
     Dates: start: 20091208
  9. URSO [Concomitant]
     Indication: LIVER DISORDER
     Dosage: 100 MG, DAILY
     Route: 048
     Dates: start: 20120720
  10. EDIROL [Concomitant]
     Dosage: 0.75 MG, UNK
     Route: 048
     Dates: start: 20120420

REACTIONS (3)
  - Face oedema [Recovered/Resolved]
  - Oedema peripheral [Recovered/Resolved]
  - Weight abnormal [Unknown]
